FAERS Safety Report 24289869 (Version 1)
Quarter: 2024Q3

REPORT INFORMATION
  Report Type: Report from Study
  Country: AU (occurrence: AU)
  Receive Date: 20240906
  Receipt Date: 20240906
  Transmission Date: 20241017
  Serious: Yes (Hospitalization)
  Sender: ROCHE
  Company Number: AU-ROCHE-10000024561

PATIENT
  Age: 67 Year
  Sex: Female
  Weight: 111 kg

DRUGS (3)
  1. RITUXIMAB [Suspect]
     Active Substance: RITUXIMAB
     Indication: Immune thrombocytopenia
     Dosage: MOST RECENT DOSE ON DEC 2023) PRIOR TO EVENT
     Route: 042
     Dates: start: 20231220, end: 20231228
  2. ASPIRIN [Concomitant]
     Active Substance: ASPIRIN
  3. AMLODIPINE [Concomitant]
     Active Substance: AMLODIPINE BESYLATE
     Indication: Cerebrovascular accident
     Route: 048
     Dates: start: 202302

REACTIONS (2)
  - Off label use [Unknown]
  - Serum sickness [Recovered/Resolved]

NARRATIVE: CASE EVENT DATE: 20231227
